APPROVED DRUG PRODUCT: AZITHROMYCIN
Active Ingredient: AZITHROMYCIN
Strength: EQ 200MG BASE/5ML
Dosage Form/Route: FOR SUSPENSION;ORAL
Application: A211521 | Product #001
Applicant: TARO PHARMACEUTICAL INDUSTRIES LTD
Approved: Dec 11, 2019 | RLD: No | RS: No | Type: DISCN